FAERS Safety Report 5420659-X (Version None)
Quarter: 2007Q3

REPORT INFORMATION
  Report Type: 
  Country: None (occurrence: None)
  Receive Date: 20070821
  Receipt Date: 20070704
  Transmission Date: 20080115
  Serious: Yes (Hospitalization)
  Sender: FDA-Public Use
  Company Number: DE-ELI_LILLY_AND_COMPANY-DE200706006063

PATIENT
  Age: 68 Year
  Sex: Female

DRUGS (5)
  1. CYMBALTA [Suspect]
     Indication: DEPRESSION
     Dosage: 120 MG, DAILY (1/D)
     Route: 048
     Dates: start: 20051026
  2. CYMBALTA [Suspect]
     Dosage: 60 MG, DAILY (1/D)
     Route: 048
  3. BUSCOPAN [Concomitant]
     Dosage: UNK, UNKNOWN
     Route: 065
  4. MORPHINE SULFATE [Concomitant]
     Dosage: 1-5 MG, DAILY (1/D)
     Route: 065
  5. MORPHINE SULFATE [Concomitant]
     Dosage: 5 MG, DAILY (1/D)
     Route: 065

REACTIONS (1)
  - ILEUS [None]
